FAERS Safety Report 22523242 (Version 1)
Quarter: 2023Q2

REPORT INFORMATION
  Report Type: Other
  Country: ES (occurrence: ES)
  Receive Date: 20230606
  Receipt Date: 20230606
  Transmission Date: 20230721
  Serious: Yes (Hospitalization)
  Sender: FDA-Public Use
  Company Number: None

PATIENT

DRUGS (2)
  1. LOSARTAN [Interacting]
     Active Substance: LOSARTAN
     Indication: Hypertension
     Dosage: 50 MILLIGRAM, BID
     Route: 048
     Dates: start: 20220315, end: 20230508
  2. BUPROPION [Interacting]
     Active Substance: BUPROPION
     Indication: Depression
     Dosage: 150 MILLIGRAM, QD
     Route: 048
     Dates: start: 20220915, end: 20230508

REACTIONS (1)
  - Inappropriate antidiuretic hormone secretion [Recovered/Resolved]

NARRATIVE: CASE EVENT DATE: 20230502
